FAERS Safety Report 14541608 (Version 4)
Quarter: 2018Q2

REPORT INFORMATION
  Report Type: Report from Study
  Country: None (occurrence: US)
  Receive Date: 20180216
  Receipt Date: 20180514
  Transmission Date: 20180711
  Serious: Yes (Other)
  Sender: FDA-Public Use
  Company Number: US-ABBVIE-18K-163-2255749-00

PATIENT
  Age: 58 Year
  Sex: Female
  Weight: 64.47 kg

DRUGS (2)
  1. HUMIRA [Suspect]
     Active Substance: ADALIMUMAB
     Indication: CROHN^S DISEASE
  2. HUMIRA [Suspect]
     Active Substance: ADALIMUMAB
     Indication: COLITIS ULCERATIVE
     Route: 058
     Dates: start: 201702

REACTIONS (10)
  - Tibia fracture [Recovering/Resolving]
  - Tendon rupture [Unknown]
  - Ankle fracture [Recovering/Resolving]
  - Joint injury [Unknown]
  - Ligament rupture [Unknown]
  - Hot flush [Not Recovered/Not Resolved]
  - Dysgeusia [Not Recovered/Not Resolved]
  - Fall [Recovering/Resolving]
  - Foot fracture [Recovering/Resolving]
  - Constipation [Unknown]

NARRATIVE: CASE EVENT DATE: 201711
